FAERS Safety Report 12624891 (Version 2)
Quarter: 2016Q3

REPORT INFORMATION
  Report Type: Spontaneous
  Country: US (occurrence: US)
  Receive Date: 20160805
  Receipt Date: 20160902
  Transmission Date: 20161109
  Serious: No
  Sender: FDA-Public Use
  Company Number: US-PFIZER INC-2016368352

PATIENT
  Age: 40 Year
  Sex: Female
  Weight: 93 kg

DRUGS (2)
  1. ZOLOFT [Concomitant]
     Active Substance: SERTRALINE HYDROCHLORIDE
     Indication: CEREBRAL DISORDER
     Dosage: UNK
     Dates: start: 1994
  2. CHANTIX [Suspect]
     Active Substance: VARENICLINE TARTRATE
     Indication: SMOKING CESSATION THERAPY
     Dosage: UNK
     Dates: start: 2006

REACTIONS (3)
  - Memory impairment [Recovering/Resolving]
  - Mental disorder [Recovered/Resolved with Sequelae]
  - Nightmare [Recovered/Resolved]
